FAERS Safety Report 23810275 (Version 2)
Quarter: 2024Q2

REPORT INFORMATION
  Report Type: Spontaneous
  Country: US (occurrence: US)
  Receive Date: 20240502
  Receipt Date: 20240514
  Transmission Date: 20240716
  Serious: Yes (Death, Hospitalization, Other)
  Sender: FDA-Public Use
  Company Number: US-JNJFOC-20240486393

PATIENT
  Age: 56 Year
  Sex: Female

DRUGS (1)
  1. CARVYKTI [Suspect]
     Active Substance: CILTACABTAGENE AUTOLEUCEL
     Indication: Plasma cell myeloma
     Route: 042
     Dates: start: 20231206, end: 20231206

REACTIONS (8)
  - Chloroma [Fatal]
  - Pelvic venous thrombosis [Unknown]
  - Lactic acidosis [Unknown]
  - Pleural effusion [Unknown]
  - Immune effector cell-associated HLH-like syndrome [Unknown]
  - Cytopenia [Unknown]
  - Plasma cell myeloma [Unknown]
  - Cytokine release syndrome [Unknown]
